FAERS Safety Report 10987026 (Version 3)
Quarter: 2015Q2

REPORT INFORMATION
  Report Type: Spontaneous
  Country: US (occurrence: None)
  Receive Date: 20150402
  Receipt Date: 20150429
  Transmission Date: 20150821
  Serious: Yes (Hospitalization, Other)
  Sender: FDA-Public Use
  Company Number: ADR-2015-00476

PATIENT
  Age: 51 Year
  Sex: Female

DRUGS (9)
  1. BACLOFEN ORAL [Suspect]
     Active Substance: BACLOFEN
  2. MULTIVITIMIN [Concomitant]
  3. NEURONTIN [Suspect]
     Active Substance: GABAPENTIN
  4. DUONEB [Suspect]
     Active Substance: ALBUTEROL SULFATE\IPRATROPIUM BROMIDE
  5. AMITRIPTYLINE [Suspect]
     Active Substance: AMITRIPTYLINE
  6. LIORESAL [Suspect]
     Active Substance: BACLOFEN
     Indication: MUSCLE SPASTICITY
  7. CELEXA [Suspect]
     Active Substance: CITALOPRAM HYDROBROMIDE
  8. TECFIDERA [Concomitant]
     Active Substance: DIMETHYL FUMARATE
  9. FLEETS [Suspect]
     Active Substance: BISACODYL OR GLYCERIN OR MINERAL OIL OR SODIUM PHOSPHATE, DIBASIC\SODIUM PHOSPHATE, MONOBASIC

REACTIONS (12)
  - Headache [None]
  - Feeling abnormal [None]
  - Asthenia [None]
  - Cerebrospinal fluid leakage [None]
  - Post lumbar puncture syndrome [None]
  - Fatigue [None]
  - Muscle spasms [None]
  - Multiple sclerosis relapse [None]
  - Device computer issue [None]
  - Nausea [None]
  - Vomiting [None]
  - Incorrect drug administration rate [None]

NARRATIVE: CASE EVENT DATE: 20150120
